FAERS Safety Report 20132950 (Version 1)
Quarter: 2021Q4

REPORT INFORMATION
  Report Type: Spontaneous
  Country: CA (occurrence: CA)
  Receive Date: 20211201
  Receipt Date: 20211201
  Transmission Date: 20220303
  Serious: Yes (Hospitalization, Other)
  Sender: FDA-Public Use
  Company Number: CA-TEVA-2021-CA-1981391

PATIENT
  Age: 27 Year
  Sex: Female

DRUGS (4)
  1. IBUPROFEN [Suspect]
     Active Substance: IBUPROFEN
     Indication: Toothache
     Route: 048
  2. ACETAMINOPHEN [Concomitant]
     Active Substance: ACETAMINOPHEN
  3. INSULIN LISPRO [Concomitant]
     Active Substance: INSULIN LISPRO
  4. IRON [Concomitant]
     Active Substance: IRON

REACTIONS (2)
  - Heart rate increased [Unknown]
  - Oligohydramnios [Unknown]
